FAERS Safety Report 4898313-2 (Version None)
Quarter: 2006Q1

REPORT INFORMATION
  Report Type: 
  Country: None (occurrence: None)
  Receive Date: 20060106
  Receipt Date: 20050729
  Transmission Date: 20060701
  Serious: Yes (Other)
  Sender: FDA-Public Use
  Company Number: HQWYE675803AUG05

PATIENT
  Age: 45 Year
  Sex: Female
  Weight: 64.92 kg

DRUGS (6)
  1. PRIMATENE MIST [Suspect]
     Indication: ASTHMA
     Dosage: 1 PUFF 1X PER 1 DAY, INHALATION
     Route: 055
     Dates: start: 20050414, end: 20050414
  2. ALBUTEROL [Concomitant]
  3. XANAX [Concomitant]
  4. PROPRANOLOL HYDROCHLORIDE [Concomitant]
  5. DILANTIN [Concomitant]
  6. UNSPECIFIED HORMONE REPLACEMENT THERAPY AGENT (UNSPECIFIED HORMONE REP [Concomitant]

REACTIONS (4)
  - ANXIETY [None]
  - BLOOD PRESSURE INCREASED [None]
  - HEADACHE [None]
  - RESPIRATORY TRACT IRRITATION [None]
